FAERS Safety Report 4679214-1 (Version None)
Quarter: 2005Q2

REPORT INFORMATION
  Report Type: 
  Country: None (occurrence: None)
  Receive Date: 20050311
  Receipt Date: 20050311
  Transmission Date: 20051028
  Serious: Yes (Other)
  Sender: FDA-Public Use
  Company Number: None

PATIENT
  Age: 5 Year
  Sex: Male
  Weight: 39.0093 kg

DRUGS (6)
  1. ADDERALL 10 [Suspect]
     Dosage: 15 MG BID (AT TIME OF EVENT DOSE WAS 10 MG AM + 5 MG AFT.
  2. ADDERALL [Concomitant]
  3. STRATTERA [Concomitant]
  4. SEROQUEL [Concomitant]
  5. KLONOPIN [Concomitant]
  6. ABILIFY [Concomitant]

REACTIONS (2)
  - DRUG INEFFECTIVE [None]
  - THERAPEUTIC RESPONSE UNEXPECTED WITH DRUG SUBSTITUTION [None]
